FAERS Safety Report 23952237 (Version 2)
Quarter: 2024Q2

REPORT INFORMATION
  Report Type: Report from Study
  Country: TH (occurrence: None)
  Receive Date: 20240607
  Receipt Date: 20240618
  Transmission Date: 20240715
  Serious: Yes (Hospitalization, Other)
  Sender: FDA-Public Use
  Company Number: 2024A118422

PATIENT
  Age: 58 Year
  Sex: Female

DRUGS (1)
  1. LYNPARZA [Suspect]
     Active Substance: OLAPARIB
     Indication: Product used for unknown indication
     Dosage: 300 MG BID
     Route: 048
     Dates: start: 20240109

REACTIONS (4)
  - Subcutaneous abscess [Unknown]
  - Wound [Unknown]
  - Red blood cell count decreased [Unknown]
  - Wound infection [Not Recovered/Not Resolved]
